FAERS Safety Report 6723768-8 (Version None)
Quarter: 2010Q2

REPORT INFORMATION
  Report Type: 
  Country: None (occurrence: None)
  Receive Date: 20100511
  Receipt Date: 20100427
  Transmission Date: 20101027
  Serious: Yes (Hospitalization)
  Sender: FDA-Public Use
  Company Number: 1-22423287

PATIENT
  Sex: Male

DRUGS (1)
  1. METFORMIN HCL [Suspect]
     Dosage: ORAL
     Route: 048

REACTIONS (4)
  - ASTHENIA [None]
  - BACK PAIN [None]
  - RENAL IMPAIRMENT [None]
  - SLUGGISHNESS [None]
